FAERS Safety Report 10907295 (Version 1)
Quarter: 2015Q1

REPORT INFORMATION
  Report Type: Spontaneous
  Country: US (occurrence: None)
  Receive Date: 20150309
  Receipt Date: 20150309
  Transmission Date: 20150721
  Serious: Yes (Disabling)
  Sender: FDA-Public Use
  Company Number: None

PATIENT
  Age: 50 Year
  Sex: Female
  Weight: 92.53 kg

DRUGS (7)
  1. TEA [Concomitant]
     Active Substance: TEA LEAF
  2. BENZONATATE (BENZONATATE) [Suspect]
     Active Substance: BENZONATATE
     Indication: BRONCHITIS
     Dosage: 1 AS NEEDED TAKEN BY MOUTH
     Route: 048
     Dates: start: 20150210, end: 20150222
  3. IMITEX [Concomitant]
  4. CLARITIN-D 12 HOUR [Concomitant]
     Active Substance: LORATADINE\PSEUDOEPHEDRINE SULFATE
  5. VITAMIN D [Concomitant]
     Active Substance: CHOLECALCIFEROL
  6. NASACORT NASAL SPRAY [Concomitant]
  7. VITAMIN B [Concomitant]
     Active Substance: VITAMIN B

REACTIONS (8)
  - Nausea [None]
  - Laryngitis [None]
  - Chest discomfort [None]
  - Confusional state [None]
  - Vomiting [None]
  - Nasal congestion [None]
  - Dyspnoea [None]
  - Wheezing [None]

NARRATIVE: CASE EVENT DATE: 20150210
